FAERS Safety Report 6744687-7 (Version None)
Quarter: 2010Q2

REPORT INFORMATION
  Report Type: 
  Country: None (occurrence: None)
  Receive Date: 20100527
  Receipt Date: 20100518
  Transmission Date: 20101027
  Serious: Yes (Hospitalization, Other)
  Sender: FDA-Public Use
  Company Number: US-CELGENEUS-163-21880-10041741

PATIENT
  Sex: Male

DRUGS (2)
  1. REVLIMID [Suspect]
     Indication: AMYLOIDOSIS
     Route: 048
     Dates: start: 20100324
  2. REVLIMID [Suspect]
     Route: 048

REACTIONS (3)
  - ASCITES [None]
  - DYSPNOEA [None]
  - PERICARDIAL EFFUSION [None]
